FAERS Safety Report 10398862 (Version 1)
Quarter: 2014Q1

REPORT INFORMATION
  Report Type: Spontaneous
  Country: US (occurrence: None)
  Receive Date: 20130805
  Receipt Date: 20130805
  Transmission Date: 20141002
  Serious: No
  Sender: FDA-Public Use
  Company Number: 2012MA014202

PATIENT
  Age: 64 Year
  Sex: Female

DRUGS (1)
  1. KADIAN (MORPHINE SULFATE EXTENDED-RELEASE) CAPSULES 200MG (AELLC) [Suspect]

REACTIONS (2)
  - Headache [None]
  - Drug ineffective [None]
